FAERS Safety Report 5378826-X (Version None)
Quarter: 2007Q2

REPORT INFORMATION
  Report Type: 
  Country: None (occurrence: None)
  Receive Date: 20070530
  Receipt Date: 20070227
  Transmission Date: 20071010
  Serious: No
  Sender: FDA-Public Use
  Company Number: 2007PV030756

PATIENT
  Age: 66 Year
  Sex: Female
  Weight: 88.905 kg

DRUGS (6)
  1. BYETTA [Suspect]
     Indication: DIABETES MELLITUS NON-INSULIN-DEPENDENT
     Dosage: 10 MCG;BID;SC; 5 MCG; BID;SC
     Route: 058
     Dates: start: 20061101, end: 20061130
  2. BYETTA [Suspect]
     Indication: DIABETES MELLITUS NON-INSULIN-DEPENDENT
     Dosage: 10 MCG;BID;SC; 5 MCG; BID;SC
     Route: 058
     Dates: start: 20061201
  3. METFORMIN HCL [Concomitant]
  4. GLYBURIDE [Concomitant]
  5. GLYBURIDE [Concomitant]
  6. TICLID [Concomitant]

REACTIONS (4)
  - INJECTION SITE RASH [None]
  - NAUSEA [None]
  - RASH PRURITIC [None]
  - WEIGHT DECREASED [None]
